FAERS Safety Report 16321429 (Version 1)
Quarter: 2019Q2

REPORT INFORMATION
  Report Type: Spontaneous
  Country: US (occurrence: US)
  Receive Date: 20190410
  Receipt Date: 20190410
  Transmission Date: 20190711
  Serious: Yes (Disabling, Other)
  Sender: FDA-Public Use
  Company Number: None

PATIENT
  Age: 57 Year
  Sex: Female
  Weight: 69.85 kg

DRUGS (6)
  1. AMOXICILLIN 500MG [Suspect]
     Active Substance: AMOXICILLIN
     Indication: OROPHARYNGEAL PAIN
     Route: 048
     Dates: start: 20180528, end: 20180606
  2. TYLENOL SINUS MED. [Concomitant]
  3. AMOXICILLIN 500MG [Suspect]
     Active Substance: AMOXICILLIN
     Indication: SINUSITIS
     Route: 048
     Dates: start: 20180528, end: 20180606
  4. TYLENOL [Concomitant]
     Active Substance: ACETAMINOPHEN
  5. AMOXICILLIN 500MG [Suspect]
     Active Substance: AMOXICILLIN
     Indication: TONSILLITIS
     Route: 048
     Dates: start: 20180528, end: 20180606
  6. EYE VITAMINS (OCUVITE) [Concomitant]

REACTIONS (10)
  - Oral pain [None]
  - Burning sensation [None]
  - Oropharyngeal pain [None]
  - Tongue discomfort [None]
  - Burning mouth syndrome [None]
  - Candida infection [None]
  - Sinus disorder [None]
  - Eating disorder [None]
  - Oral discomfort [None]
  - Cough [None]

NARRATIVE: CASE EVENT DATE: 20180529
